FAERS Safety Report 14859402 (Version 1)
Quarter: 2018Q2

REPORT INFORMATION
  Report Type: Report from Study
  Country: BR (occurrence: BR)
  Receive Date: 20180508
  Receipt Date: 20180508
  Transmission Date: 20180711
  Serious: Yes (Life-Threatening, Other)
  Sender: FDA-Public Use
  Company Number: PHHY2018BR076226

PATIENT
  Age: 36 Year
  Sex: Female
  Weight: 63 kg

DRUGS (5)
  1. TEGRETOL XR [Suspect]
     Active Substance: CARBAMAZEPINE
     Indication: EPILEPSY
     Dosage: 1.5 DF, Q12H
     Route: 048
  2. HIDANTAL [Concomitant]
     Active Substance: PHENYTOIN SODIUM
     Indication: EPILEPSY
     Dosage: 150 MG, Q12H
     Route: 048
  3. GARDENAL [Concomitant]
     Active Substance: PHENOBARBITAL
     Indication: EPILEPSY
     Dosage: 100 MG, Q12H
     Route: 048
  4. FRONTAL [Concomitant]
     Active Substance: ALPRAZOLAM
     Indication: SLEEP DISORDER
     Dosage: 2 MG, QHS
     Route: 048
  5. FRONTAL XR [Concomitant]
     Active Substance: ALPRAZOLAM
     Indication: SEDATIVE THERAPY
     Dosage: 0.5 MG, (ABOUT 3 OR 4 MONTHS AGO)
     Route: 048

REACTIONS (6)
  - Petit mal epilepsy [Recovering/Resolving]
  - Coma [Unknown]
  - Seizure [Recovering/Resolving]
  - Memory impairment [Unknown]
  - Fear [Unknown]
  - Primary immunodeficiency syndrome [Not Recovered/Not Resolved]

NARRATIVE: CASE EVENT DATE: 20180424
